FAERS Safety Report 5284614-5 (Version None)
Quarter: 2007Q1

REPORT INFORMATION
  Report Type: 
  Country: None (occurrence: None)
  Receive Date: 20061222
  Receipt Date: 20060407
  Transmission Date: 20070707
  Serious: Yes (Other)
  Sender: FDA-Public Use
  Company Number: CHPA2006US01736

PATIENT
  Age: 43 Year
  Sex: Female
  Weight: 49.9 kg

DRUGS (2)
  1. TRANSDERM SCOP [Suspect]
     Indication: PROPHYLAXIS AGAINST MOTION SICKNESS
     Dosage: 1.5 MG,Q72H, TRANSDERMAL
     Route: 062
     Dates: start: 20060107, end: 20060111
  2. FERROUS GLUCONATE (FERROUS GLUCONATE) [Concomitant]

REACTIONS (4)
  - EXTRAOCULAR MUSCLE PARESIS [None]
  - EYE PAIN [None]
  - VISION BLURRED [None]
  - VISUAL ACUITY REDUCED [None]
